FAERS Safety Report 15284909 (Version 2)
Quarter: 2018Q3

REPORT INFORMATION
  Report Type: Report from Study
  Country: DE (occurrence: DE)
  Receive Date: 20180816
  Receipt Date: 20180910
  Transmission Date: 20181010
  Serious: Yes (Hospitalization)
  Sender: FDA-Public Use
  Company Number: DE-SA-2018SA151082

PATIENT
  Age: 88 Year
  Sex: Female

DRUGS (6)
  1. DRONEDARONE [Suspect]
     Active Substance: DRONEDARONE
     Dosage: UNK, UNK
  2. MOLSIDOMIN [Concomitant]
     Active Substance: MOLSIDOMINE
     Dosage: UNK
  3. AMIODARONE HYDROCHLORIDE. [Suspect]
     Active Substance: AMIODARONE HYDROCHLORIDE
     Dosage: UNK
     Dates: start: 20180317
  4. BISOPROLOL [Concomitant]
     Active Substance: BISOPROLOL
     Dosage: UNK
  5. CANDESARTAN. [Concomitant]
     Active Substance: CANDESARTAN
     Dosage: UNK
  6. APIXABAN [Concomitant]
     Active Substance: APIXABAN
     Dosage: UNK

REACTIONS (1)
  - Temporal arteritis [Recovered/Resolved]

NARRATIVE: CASE EVENT DATE: 20180316
